FAERS Safety Report 24204083 (Version 1)
Quarter: 2024Q3

REPORT INFORMATION
  Report Type: Spontaneous
  Country: US (occurrence: US)
  Receive Date: 20240813
  Receipt Date: 20240813
  Transmission Date: 20241017
  Serious: Yes (Other)
  Sender: RANBAXY
  Company Number: US-SUN PHARMACEUTICAL INDUSTRIES LTD-2024R1-460810

PATIENT
  Age: 82 Year
  Sex: Male

DRUGS (4)
  1. LEUPROLIDE [Suspect]
     Active Substance: LEUPROLIDE
     Indication: Prostate cancer
     Route: 065
  2. ENZALUTAMIDE [Suspect]
     Active Substance: ENZALUTAMIDE
     Indication: Prostate cancer
     Dosage: UNK
     Route: 065
  3. DEGARELIX [Suspect]
     Active Substance: DEGARELIX
     Indication: Prostate cancer
     Dosage: UNK
     Route: 065
  4. CABAZITAXEL [Suspect]
     Active Substance: CABAZITAXEL
     Indication: Prostate cancer
     Dosage: UNK
     Route: 065

REACTIONS (2)
  - Drug resistance [Unknown]
  - Neoplasm progression [Unknown]
